FAERS Safety Report 5098435-X (Version None)
Quarter: 2006Q3

REPORT INFORMATION
  Report Type: 
  Country: None (occurrence: None)
  Receive Date: 20060907
  Receipt Date: 20060828
  Transmission Date: 20061208
  Serious: Yes (Other)
  Sender: FDA-Public Use
  Company Number: PHBS2006BR13176

PATIENT
  Age: 12 Year
  Sex: Male

DRUGS (1)
  1. TEGRETOL [Suspect]
     Indication: PETIT MAL EPILEPSY
     Dosage: 500 MG/DAY
     Route: 048
     Dates: start: 20000101

REACTIONS (8)
  - ASTHENIA [None]
  - DISORIENTATION [None]
  - FATIGUE [None]
  - LEARNING DISORDER [None]
  - MEMORY IMPAIRMENT [None]
  - NERVOUS SYSTEM DISORDER [None]
  - PETIT MAL EPILEPSY [None]
  - SOMNOLENCE [None]
